FAERS Safety Report 8010992-X (Version None)
Quarter: 2011Q4

REPORT INFORMATION
  Report Type: 
  Country: None (occurrence: None)
  Receive Date: 20111228
  Receipt Date: 20111223
  Transmission Date: 20120403
  Serious: Yes (Hospitalization, Disabling, Other)
  Sender: FDA-Public Use
  Company Number: DE-PFIZER INC-2011311271

PATIENT
  Age: 75 Year
  Sex: Female

DRUGS (9)
  1. SIMVASTATIN [Concomitant]
     Indication: HYPERLIPIDAEMIA
     Dosage: 40 UNITS NOT PROVIDED
     Route: 048
     Dates: end: 20110727
  2. DURAGESIC-100 [Concomitant]
     Dosage: 100 UG/H
  3. OXYCODONE HYDROCHLORIDE [Concomitant]
  4. OLMESARTAN [Concomitant]
  5. METOPROLOL [Concomitant]
     Dosage: 200 UNK, UNK
  6. GABAPENTIN [Suspect]
     Indication: NEUROPATHY PERIPHERAL
     Dosage: 600 MG, 3X/DAY
     Route: 048
     Dates: start: 20110725, end: 20110725
  7. MARCUMAR [Concomitant]
  8. OMEPRAZOLE [Concomitant]
     Route: 048
  9. AMITRIPTYLINE [Concomitant]

REACTIONS (1)
  - RHABDOMYOLYSIS [None]
